FAERS Safety Report 4579221-3 (Version None)
Quarter: 2005Q1

REPORT INFORMATION
  Report Type: 
  Country: None (occurrence: None)
  Receive Date: 20050208
  Receipt Date: 20050208
  Transmission Date: 20050727
  Serious: Yes (Other)
  Sender: FDA-Public Use
  Company Number: None

PATIENT

DRUGS (2)
  1. PROZAC [Suspect]
     Indication: DEPRESSION
     Dosage: PO
     Dates: start: 20050110
  2. LEXAPRO [Suspect]
     Dates: start: 20050105

REACTIONS (5)
  - BLOOD GLUCOSE ABNORMAL [None]
  - DRUG INEFFECTIVE [None]
  - PHARMACEUTICAL PRODUCT COMPLAINT [None]
  - SEXUAL DYSFUNCTION [None]
  - THINKING ABNORMAL [None]
